FAERS Safety Report 6465631-6 (Version None)
Quarter: 2009Q4

REPORT INFORMATION
  Report Type: 
  Country: None (occurrence: None)
  Receive Date: 20091124
  Receipt Date: 20091116
  Transmission Date: 20100525
  Serious: Yes (Hospitalization)
  Sender: FDA-Public Use
  Company Number: 220004J09GRC

PATIENT
  Age: 19 Year
  Sex: Male

DRUGS (1)
  1. SAIZEN [Suspect]
     Indication: GROWTH HORMONE DEFICIENCY
     Dosage: SUBCUTANEOUS
     Route: 058
     Dates: start: 20060101

REACTIONS (3)
  - GAIT DISTURBANCE [None]
  - NERVOUS SYSTEM DISORDER [None]
  - PAIN IN EXTREMITY [None]
